FAERS Safety Report 7909522-X (Version None)
Quarter: 2011Q4

REPORT INFORMATION
  Report Type: 
  Country: None (occurrence: None)
  Receive Date: 20111111
  Receipt Date: 20111103
  Transmission Date: 20120403
  Serious: Yes (Hospitalization)
  Sender: FDA-Public Use
  Company Number: FR-JNJFOC-20110900156

PATIENT
  Sex: Male

DRUGS (8)
  1. PALIPERIDONE [Suspect]
     Route: 030
     Dates: start: 20110722, end: 20110722
  2. ATORVASTATIN [Concomitant]
     Indication: HYPERCHOLESTEROLAEMIA
     Dates: start: 20110611
  3. HALOPERIDOL [Concomitant]
     Dates: start: 20110727, end: 20110728
  4. PALIPERIDONE [Suspect]
     Indication: SCHIZOPHRENIA
     Route: 030
     Dates: start: 20110729, end: 20110826
  5. LORAZEPAM [Concomitant]
     Dates: start: 20110717, end: 20110725
  6. LORAZEPAM [Concomitant]
     Indication: ANXIETY
     Dates: start: 20110726
  7. HALOPERIDOL [Concomitant]
     Indication: SCHIZOPHRENIA
     Dates: start: 20110623, end: 20110726
  8. HALOPERIDOL [Concomitant]
     Dates: start: 20110729, end: 20110811

REACTIONS (3)
  - DISSOCIATIVE IDENTITY DISORDER [None]
  - DELIRIUM [None]
  - HALLUCINATION, AUDITORY [None]
